FAERS Safety Report 19069015 (Version 1)
Quarter: 2021Q1

REPORT INFORMATION
  Report Type: Spontaneous
  Country: US (occurrence: US)
  Receive Date: 20210329
  Receipt Date: 20210329
  Transmission Date: 20210420
  Serious: Yes (Hospitalization)
  Sender: FDA-Public Use
  Company Number: None

PATIENT
  Age: 67 Year
  Sex: Female
  Weight: 79.11 kg

DRUGS (16)
  1. FISH OIL [Concomitant]
     Active Substance: FISH OIL
  2. PENTAZOCINA?NALOXONE [Concomitant]
  3. TOPAMAX [Concomitant]
     Active Substance: TOPIRAMATE
  4. CAPECITABINE. [Suspect]
     Active Substance: CAPECITABINE
     Indication: ANAL CANCER
     Route: 048
     Dates: start: 20210120, end: 20210209
  5. TIZANIDINE. [Concomitant]
     Active Substance: TIZANIDINE
  6. LOVENOX [Concomitant]
     Active Substance: ENOXAPARIN SODIUM
  7. MONTELUKAST [Concomitant]
     Active Substance: MONTELUKAST SODIUM
  8. SYMBICORT [Concomitant]
     Active Substance: BUDESONIDE\FORMOTEROL FUMARATE DIHYDRATE
  9. NITROGLYCERIN. [Concomitant]
     Active Substance: NITROGLYCERIN
  10. VYEPTI [Concomitant]
     Active Substance: EPTINEZUMAB-JJMR
  11. AMITRIPTYLINE [Concomitant]
     Active Substance: AMITRIPTYLINE
  12. PHILIPS COLON HEALTH [Concomitant]
  13. COENZYME Q10 [Concomitant]
     Active Substance: DIETARY SUPPLEMENT\UBIDECARENONE
  14. ATENOLOL. [Concomitant]
     Active Substance: ATENOLOL
  15. COUMADIN [Concomitant]
     Active Substance: WARFARIN SODIUM
  16. VITAMIN D2 [Concomitant]
     Active Substance: ERGOCALCIFEROL

REACTIONS (4)
  - Hypervolaemia [None]
  - Small intestinal obstruction [None]
  - Therapy interrupted [None]
  - Shock [None]

NARRATIVE: CASE EVENT DATE: 20210329
